FAERS Safety Report 13545401 (Version 4)
Quarter: 2018Q1

REPORT INFORMATION
  Report Type: Report from Study
  Country: US (occurrence: US)
  Receive Date: 20170515
  Receipt Date: 20180306
  Transmission Date: 20180508
  Serious: Yes (Other)
  Sender: FDA-Public Use
  Company Number: US-JNJFOC-20160419304

PATIENT
  Age: 64 Year
  Sex: Male

DRUGS (1)
  1. IMBRUVICA [Suspect]
     Active Substance: IBRUTINIB
     Indication: CHRONIC LYMPHOCYTIC LEUKAEMIA
     Route: 048
     Dates: start: 20160404

REACTIONS (12)
  - Red blood cell count increased [Recovering/Resolving]
  - Incorrect dose administered [Recovered/Resolved]
  - Lymphocyte count decreased [Recovering/Resolving]
  - Off label use [Recovered/Resolved]
  - Heart rate increased [Unknown]
  - Haemoglobin increased [Recovering/Resolving]
  - Fatigue [Not Recovered/Not Resolved]
  - Blood count abnormal [Recovering/Resolving]
  - Dizziness postural [Not Recovered/Not Resolved]
  - White blood cell count decreased [Recovering/Resolving]
  - Dyspnoea [Not Recovered/Not Resolved]
  - Haemoglobin decreased [Recovering/Resolving]

NARRATIVE: CASE EVENT DATE: 2016
